FAERS Safety Report 18742741 (Version 1)
Quarter: 2021Q1

REPORT INFORMATION
  Report Type: Spontaneous
  Country: US (occurrence: US)
  Receive Date: 20210114
  Receipt Date: 20210114
  Transmission Date: 20210419
  Serious: No
  Sender: FDA-Public Use
  Company Number: US-INSUD PHARMA-2012US00272

PATIENT

DRUGS (1)
  1. LANSOPRAZOLE. [Suspect]
     Active Substance: LANSOPRAZOLE
     Indication: GASTROINTESTINAL DISORDER
     Dosage: 30 MG ONCE DAILY
     Route: 048
     Dates: start: 20201202

REACTIONS (2)
  - Incorrect route of product administration [Unknown]
  - Complication associated with device [Unknown]

NARRATIVE: CASE EVENT DATE: 202012
